FAERS Safety Report 6956479-4 (Version None)
Quarter: 2010Q3

REPORT INFORMATION
  Report Type: 
  Country: None (occurrence: None)
  Receive Date: 20100830
  Receipt Date: 20100820
  Transmission Date: 20110219
  Serious: Yes (Hospitalization)
  Sender: FDA-Public Use
  Company Number: US-AMGEN-QUU432914

PATIENT
  Sex: Male

DRUGS (2)
  1. ENBREL [Suspect]
     Indication: RHEUMATOID ARTHRITIS
     Route: 058
     Dates: start: 20050101
  2. HUMIRA [Concomitant]

REACTIONS (3)
  - GASTROINTESTINAL FUNGAL INFECTION [None]
  - IMMUNOSUPPRESSION [None]
  - RHEUMATOID ARTHRITIS [None]
